FAERS Safety Report 9153493 (Version 2)
Quarter: 2013Q1

REPORT INFORMATION
  Report Type: Report from Study
  Country: US (occurrence: US)
  Receive Date: 20130311
  Receipt Date: 20130314
  Transmission Date: 20140127
  Serious: Yes (Hospitalization)
  Sender: FDA-Public Use
  Company Number: US-JNJFOC-20130302175

PATIENT
  Age: 19 Year
  Sex: Female
  Weight: 70.7 kg

DRUGS (23)
  1. REMICADE [Suspect]
     Indication: CROHN^S DISEASE
     Route: 042
     Dates: start: 20090416
  2. HUMIRA [Concomitant]
     Route: 065
     Dates: start: 20100114
  3. 5-ASA [Concomitant]
     Route: 048
  4. HYDROCORTISONE [Concomitant]
     Route: 065
  5. PREDNISONE [Concomitant]
     Route: 065
  6. BUDESONIDE [Concomitant]
     Route: 065
  7. THALIDOMIDE [Concomitant]
     Route: 065
  8. ANTIBIOTICS NOS [Concomitant]
     Indication: CROHN^S DISEASE
     Route: 065
  9. ACETAMINOPHEN [Concomitant]
     Route: 065
  10. HYOSCYAMINE [Concomitant]
     Route: 065
  11. LANSOPRAZOLE [Concomitant]
     Route: 065
  12. MULTIVITAMINS [Concomitant]
     Route: 065
  13. DEXAMETHASONE [Concomitant]
     Route: 065
  14. NORCO [Concomitant]
     Route: 065
  15. DIPHENHYDRAMINE [Concomitant]
     Route: 065
  16. AMITRIPTYLINE [Concomitant]
     Route: 065
  17. VITAMIN D3 [Concomitant]
     Route: 065
  18. MEDROXYPROGESTERONE ACETATE [Concomitant]
     Route: 065
  19. PROCHLORPERAZINE [Concomitant]
     Route: 065
  20. CEPHALEXIN [Concomitant]
     Route: 065
  21. LEVAQUIN [Concomitant]
     Route: 065
  22. VANCOMYCIN [Concomitant]
     Route: 065
  23. DAPTOMYCIN [Concomitant]
     Route: 065

REACTIONS (1)
  - Crohn^s disease [Recovered/Resolved with Sequelae]
